FAERS Safety Report 23461269 (Version 4)
Quarter: 2024Q1

REPORT INFORMATION
  Report Type: Spontaneous
  Country: US (occurrence: US)
  Receive Date: 20240131
  Receipt Date: 20240304
  Transmission Date: 20240409
  Serious: Yes (Hospitalization, Other)
  Sender: FDA-Public Use
  Company Number: US-INCYTE CORPORATION-2024IN000917

PATIENT

DRUGS (5)
  1. JAKAFI [Suspect]
     Active Substance: RUXOLITINIB
     Indication: Polycythaemia vera
     Dosage: 10 MILLIGRAM, BID
     Route: 048
     Dates: start: 20230801
  2. JAKAFI [Suspect]
     Active Substance: RUXOLITINIB
     Dosage: 10 MILLIGRAM, BID
     Route: 048
     Dates: start: 20230801
  3. ASPIRIN [Concomitant]
     Active Substance: ASPIRIN
     Indication: Product used for unknown indication
     Dosage: 81 MILLIGRAM
     Route: 065
  4. CEFDINIR [Concomitant]
     Active Substance: CEFDINIR
     Indication: Product used for unknown indication
     Dosage: 300MG TWO TABLETS A DAY
     Route: 065
  5. DOXYCYCLINE [Concomitant]
     Active Substance: DOXYCYCLINE
     Indication: Product used for unknown indication
     Dosage: 100MG TWO TABLETS A DAY
     Route: 065

REACTIONS (9)
  - Thrombosis [Unknown]
  - Pulmonary embolism [Unknown]
  - Pneumonia [Unknown]
  - Feeling abnormal [Unknown]
  - Decreased activity [Unknown]
  - Product dose omission issue [Unknown]
  - Product availability issue [Unknown]
  - Balance disorder [Unknown]
  - Blood pressure systolic increased [Unknown]

NARRATIVE: CASE EVENT DATE: 20240127
